FAERS Safety Report 6912905-8 (Version None)
Quarter: 2010Q3

REPORT INFORMATION
  Report Type: 
  Country: None (occurrence: None)
  Receive Date: 20100806
  Receipt Date: 20090324
  Transmission Date: 20110219
  Serious: No
  Sender: FDA-Public Use
  Company Number: US-PFIZER INC-2009156302

PATIENT
  Sex: Female

DRUGS (2)
  1. GLUCOTROL XL [Suspect]
     Dosage: UNK
  2. GLUCOFAGE [Suspect]
     Dosage: UNK

REACTIONS (3)
  - FATIGUE [None]
  - GLYCOSYLATED HAEMOGLOBIN INCREASED [None]
  - INSOMNIA [None]
